FAERS Safety Report 6307789-5 (Version None)
Quarter: 2009Q3

REPORT INFORMATION
  Report Type: 
  Country: None (occurrence: None)
  Receive Date: 20090812
  Receipt Date: 20090812
  Transmission Date: 20100115
  Serious: Yes (Other)
  Sender: FDA-Public Use
  Company Number: None

PATIENT
  Age: 24 Year
  Sex: Male
  Weight: 70 kg

DRUGS (1)
  1. REDUCTIL CAPSULES 10 MILIGRAM ABBOTT LABORATORIES-PAK- [Suspect]
     Indication: WEIGHT CONTROL
     Dosage: 1 O.D. BUCCAL
     Route: 002
     Dates: start: 20090601, end: 20090630

REACTIONS (2)
  - ASTHENIA [None]
  - RETROGRADE EJACULATION [None]
